FAERS Safety Report 6911600-9 (Version None)
Quarter: 2010Q3

REPORT INFORMATION
  Report Type: 
  Country: None (occurrence: None)
  Receive Date: 20100806
  Receipt Date: 20100726
  Transmission Date: 20110219
  Serious: Yes (Hospitalization, Other)
  Sender: FDA-Public Use
  Company Number: GR-PFIZER INC-2010096535

PATIENT
  Age: 73 Year
  Sex: Male

DRUGS (1)
  1. EPIRUBICIN HYDROCHLORIDE [Suspect]
     Indication: BLADDER CANCER

REACTIONS (3)
  - BLADDER PERFORATION [None]
  - CELLULITIS [None]
  - EXTRAVASATION OF URINE [None]
